FAERS Safety Report 19727814 (Version 1)
Quarter: 2021Q3

REPORT INFORMATION
  Report Type: Spontaneous
  Country: US (occurrence: US)
  Receive Date: 20210820
  Receipt Date: 20210820
  Transmission Date: 20211014
  Serious: Yes (Life-Threatening, Disabling, Other)
  Sender: FDA-Public Use
  Company Number: None

PATIENT
  Age: 25 Year
  Sex: Male
  Weight: 144 kg

DRUGS (4)
  1. BAMLANIVIMAB. [Suspect]
     Active Substance: BAMLANIVIMAB
     Indication: SARS-COV-2 TEST POSITIVE
     Route: 058
     Dates: start: 20210329, end: 20210329
  2. BAMLANIVIMAB. [Suspect]
     Active Substance: BAMLANIVIMAB
     Indication: ASTHMA
     Route: 058
     Dates: start: 20210329, end: 20210329
  3. SINGULAIR [Concomitant]
     Active Substance: MONTELUKAST SODIUM
  4. KEPPRA [Concomitant]
     Active Substance: LEVETIRACETAM

REACTIONS (1)
  - Seizure [None]

NARRATIVE: CASE EVENT DATE: 20210323
